FAERS Safety Report 7220090-0 (Version None)
Quarter: 2011Q1

REPORT INFORMATION
  Report Type: 
  Country: None (occurrence: None)
  Receive Date: 20110111
  Receipt Date: 20110104
  Transmission Date: 20110831
  Serious: Yes (Other)
  Sender: FDA-Public Use
  Company Number: B0486945A

PATIENT
  Age: 19 Year
  Sex: Female

DRUGS (2)
  1. ORAL CONTRACEPTIVE [Concomitant]
  2. PENICILLIN V [Suspect]
     Indication: UPPER RESPIRATORY TRACT INFECTION

REACTIONS (14)
  - PAIN [None]
  - MALAISE [None]
  - BLISTER [None]
  - CHILLS [None]
  - PYREXIA [None]
  - RASH MACULO-PAPULAR [None]
  - RASH PUSTULAR [None]
  - TACHYCARDIA [None]
  - NIKOLSKY'S SIGN [None]
  - CONJUNCTIVAL HYPERAEMIA [None]
  - VOMITING [None]
  - TOXIC EPIDERMAL NECROLYSIS [None]
  - ERYTHEMA [None]
  - MUCOSAL EROSION [None]
